FAERS Safety Report 4698316-7 (Version None)
Quarter: 2005Q2

REPORT INFORMATION
  Report Type: 
  Country: None (occurrence: None)
  Receive Date: 20050623
  Receipt Date: 20050325
  Transmission Date: 20051028
  Serious: Yes (Other)
  Sender: FDA-Public Use
  Company Number: JP-ROCHE-400297

PATIENT
  Age: 1 Year
  Sex: Female

DRUGS (8)
  1. TAMIFLU [Suspect]
     Route: 048
     Dates: start: 20050315, end: 20050315
  2. TAMIFLU [Suspect]
     Route: 048
     Dates: start: 20050316, end: 20050316
  3. MEIACT [Concomitant]
     Indication: DRUG USE FOR UNKNOWN INDICATION
     Route: 048
     Dates: start: 20050315
  4. ACETAMINOPHEN [Concomitant]
     Indication: DRUG USE FOR UNKNOWN INDICATION
     Dosage: DOSE FORM REPORTED AS ORAL FORMULATION (NOT OTHERWISE SPECIFIED).
     Route: 048
     Dates: start: 20050316, end: 20050317
  5. MUCODYNE [Concomitant]
     Indication: DRUG USE FOR UNKNOWN INDICATION
     Route: 048
     Dates: start: 20050316
  6. ENTERONON [Concomitant]
     Route: 065
  7. ASVERIN [Concomitant]
     Indication: DRUG USE FOR UNKNOWN INDICATION
     Route: 048
     Dates: start: 20050316
  8. DIAZEPAM [Concomitant]
     Route: 054
     Dates: start: 20050316, end: 20050317

REACTIONS (4)
  - BALANCE DISORDER [None]
  - CRYING [None]
  - EXCITABILITY [None]
  - PNEUMONIA [None]
